FAERS Safety Report 9291232 (Version 1)
Quarter: 2012Q4

REPORT INFORMATION
  Report Type: Spontaneous
  Country: AM (occurrence: None)
  Receive Date: 20121123
  Receipt Date: 20121123
  Transmission Date: 20130627
  Serious: Yes (Other)
  Sender: FDA-Public Use
  Company Number: AM-1195212

PATIENT
  Age: 72 Year
  Sex: Female

DRUGS (1)
  1. AZOPT 1 % OPHTHLAMIC SUSPENSION (AZOPT 1 %) [Suspect]
     Route: 047

REACTIONS (3)
  - Myocardial infarction [None]
  - Tachycardia [None]
  - Asthenia [None]
